FAERS Safety Report 15614984 (Version 1)
Quarter: 2018Q4

REPORT INFORMATION
  Report Type: Spontaneous
  Country: JP (occurrence: JP)
  Receive Date: 20181114
  Receipt Date: 20181114
  Transmission Date: 20190205
  Serious: Yes (Life-Threatening, Hospitalization, Disabling, Other)
  Sender: FDA-Public Use
  Company Number: JP-REGENERON PHARMACEUTICALS, INC.-2018-41159

PATIENT

DRUGS (8)
  1. EYLEA [Suspect]
     Active Substance: AFLIBERCEPT
     Indication: AGE-RELATED MACULAR DEGENERATION
     Dosage: 0.05 ML, LEFT EYE
     Route: 031
     Dates: start: 20180710, end: 20180710
  2. BRONUCK [Concomitant]
     Active Substance: BROMFENAC SODIUM
     Indication: PRODUCT USED FOR UNKNOWN INDICATION
     Dosage: LEFT EYE
     Route: 047
     Dates: start: 20180711, end: 20181003
  3. EYLEA [Suspect]
     Active Substance: AFLIBERCEPT
     Dosage: 0.05 ML, LEFT EYE
     Route: 031
     Dates: start: 20180815, end: 20180815
  4. GATIFLO [Concomitant]
     Active Substance: GATIFLOXACIN
     Indication: PRODUCT USED FOR UNKNOWN INDICATION
     Dosage: LEFT EYE
     Route: 047
     Dates: start: 20180707, end: 20180714
  5. GATIFLO [Concomitant]
     Active Substance: GATIFLOXACIN
     Dosage: LEFT EYE
     Route: 047
     Dates: start: 20180812, end: 20180819
  6. KALLIDINOGENASE [Concomitant]
     Active Substance: KALLIDINOGENASE
     Indication: PRODUCT USED FOR UNKNOWN INDICATION
     Dosage: UNK UNK, TID
     Route: 048
     Dates: start: 20180711, end: 20181003
  7. GATIFLO [Concomitant]
     Active Substance: GATIFLOXACIN
     Dosage: LEFT EYE
     Route: 047
     Dates: start: 20180916, end: 20180923
  8. EYLEA [Suspect]
     Active Substance: AFLIBERCEPT
     Dosage: 0.05 ML, LEFT EYE
     Route: 031
     Dates: start: 20180919, end: 20180919

REACTIONS (3)
  - Cerebral infarction [Unknown]
  - Cerebral infarction [Not Recovered/Not Resolved]
  - Cerebral artery stenosis [Not Recovered/Not Resolved]

NARRATIVE: CASE EVENT DATE: 20180926
